FAERS Safety Report 4914090-0 (Version None)
Quarter: 2006Q1

REPORT INFORMATION
  Report Type: 
  Country: None (occurrence: None)
  Receive Date: 20060210
  Receipt Date: 20060203
  Transmission Date: 20060701
  Serious: Yes (Other)
  Sender: FDA-Public Use
  Company Number: A0592285A

PATIENT
  Sex: Female

DRUGS (1)
  1. REQUIP [Suspect]
     Indication: RESTLESS LEGS SYNDROME
     Dosage: 1 MG/ PER DAY / ORAL
     Route: 048

REACTIONS (3)
  - GASTROENTERITIS VIRAL [None]
  - INFLUENZA [None]
  - NAUSEA [None]
